FAERS Safety Report 6058829-2 (Version None)
Quarter: 2009Q1

REPORT INFORMATION
  Report Type: 
  Country: None (occurrence: None)
  Receive Date: 20090128
  Receipt Date: 20090128
  Transmission Date: 20090719
  Serious: Yes (Hospitalization, Other)
  Sender: FDA-Public Use
  Company Number: None

PATIENT
  Age: 48 Year
  Sex: Female
  Weight: 123.832 kg

DRUGS (2)
  1. METHYLPREDNISOLONE 4MG CADISTA [Suspect]
     Indication: ASTHMA
     Dosage: 21 TABLETS PAK DAILY PO
     Route: 048
     Dates: start: 20090111, end: 20090117
  2. METHYLPREDNISOLONE 4MG CADISTA [Suspect]
     Indication: VIRAL INFECTION
     Dosage: 21 TABLETS PAK DAILY PO
     Route: 048
     Dates: start: 20090111, end: 20090117

REACTIONS (3)
  - ALOPECIA [None]
  - CRYING [None]
  - DEPRESSION [None]
